FAERS Safety Report 10480299 (Version 2)
Quarter: 2014Q4

REPORT INFORMATION
  Report Type: Spontaneous
  Country: FR (occurrence: None)
  Receive Date: 20140925
  Receipt Date: 20141008
  Transmission Date: 20150528
  Serious: Yes (Life-Threatening)
  Sender: FDA-Public Use
  Company Number: FK201403768

PATIENT
  Age: 50 Year
  Sex: Female

DRUGS (2)
  1. PROPOFOL FRESENIUS (NOT SPECIFIED) (PROPOFOL) (PROPOFOL) [Suspect]
     Active Substance: PROPOFOL
     Indication: INDUCTION OF ANAESTHESIA
     Dosage: NOT OTHERWISE SPECIFIED
     Route: 042
     Dates: start: 20140823, end: 20140823
  2. CELOCURINE [Suspect]
     Active Substance: SUCCINYLCHOLINE CHLORIDE
     Indication: INDUCTION OF ANAESTHESIA
     Dosage: NOT OTHERWISE SPECIFIED
     Route: 042
     Dates: start: 20140823, end: 20140823

REACTIONS (1)
  - Anaphylactic shock [None]

NARRATIVE: CASE EVENT DATE: 20140823
